FAERS Safety Report 17932216 (Version 2)
Quarter: 2020Q3

REPORT INFORMATION
  Report Type: Report from Study
  Country: US (occurrence: US)
  Receive Date: 20200623
  Receipt Date: 20200903
  Transmission Date: 20201103
  Serious: Yes (Hospitalization, Other)
  Sender: FDA-Public Use
  Company Number: NVSC2020US172426

PATIENT
  Age: 18 Year
  Sex: Female
  Weight: 64.5 kg

DRUGS (16)
  1. ADAKVEO [Suspect]
     Active Substance: CRIZANLIZUMAB-TMCA
     Dosage: UNK
     Route: 042
     Dates: start: 20200422
  2. VITAMINA D3 [Concomitant]
     Active Substance: CHOLECALCIFEROL
     Indication: PRODUCT USED FOR UNKNOWN INDICATION
     Dosage: 2 DF, QD
     Route: 048
     Dates: start: 20200223
  3. OXYCODONE [Concomitant]
     Active Substance: OXYCODONE
     Indication: PAIN
     Dosage: 10 MG (EVERY 4 HOURS AS NEEDED)
     Route: 048
     Dates: start: 20200622
  4. L.M.X.4 [Concomitant]
     Indication: PRODUCT USED FOR UNKNOWN INDICATION
     Dosage: UNK
     Route: 065
  5. INFUSAN D5 + NS [Concomitant]
     Indication: PRODUCT USED FOR UNKNOWN INDICATION
     Dosage: UNK (1634)
     Route: 042
     Dates: start: 20200708
  6. NORMAL SALINE [Concomitant]
     Active Substance: SODIUM CHLORIDE
     Indication: PRODUCT USED FOR UNKNOWN INDICATION
     Dosage: UNK
     Route: 042
  7. ZOFRAN [Concomitant]
     Active Substance: ONDANSETRON HYDROCHLORIDE
     Indication: NAUSEA
     Dosage: 2 DF (EVERY 8 HOURS AS NEEDED)
     Route: 048
     Dates: start: 20200626
  8. ZYRTEC [Concomitant]
     Active Substance: CETIRIZINE HYDROCHLORIDE
     Indication: RHINITIS ALLERGIC
     Dosage: UNK
     Route: 065
  9. FOLVITE [Concomitant]
     Active Substance: FOLIC ACID
     Indication: PRODUCT USED FOR UNKNOWN INDICATION
     Dosage: 1 DF, QD
     Route: 048
     Dates: start: 20200622
  10. ADAKVEO [Suspect]
     Active Substance: CRIZANLIZUMAB-TMCA
     Indication: SICKLE CELL ANAEMIA WITH CRISIS
     Dosage: UNK
     Route: 065
  11. ADAKVEO [Suspect]
     Active Substance: CRIZANLIZUMAB-TMCA
     Dosage: 346 MG
     Route: 065
     Dates: start: 20200803
  12. HYDROXYUREA. [Concomitant]
     Active Substance: HYDROXYUREA
     Indication: PRODUCT USED FOR UNKNOWN INDICATION
     Dosage: 4 DF, QD
     Route: 048
     Dates: start: 20200622
  13. ADAKVEO [Suspect]
     Active Substance: CRIZANLIZUMAB-TMCA
     Indication: SICKLE CELL DISEASE
     Dosage: UNK
     Route: 042
     Dates: start: 202004, end: 202004
  14. JADENU [Concomitant]
     Active Substance: DEFERASIROX
     Indication: PRODUCT USED FOR UNKNOWN INDICATION
     Dosage: 4 DF, QD
     Route: 048
     Dates: start: 20200622
  15. ZOFRAN [Concomitant]
     Active Substance: ONDANSETRON HYDROCHLORIDE
     Indication: VOMITING
  16. CLARITIN [Concomitant]
     Active Substance: LORATADINE
     Indication: RHINITIS ALLERGIC
     Dosage: UNK
     Route: 065

REACTIONS (38)
  - Pain [Recovered/Resolved]
  - Osteonecrosis [Unknown]
  - Protein total increased [Unknown]
  - Neutrophil count abnormal [Unknown]
  - Blood albumin abnormal [Unknown]
  - Haemoglobin decreased [Unknown]
  - Overweight [Unknown]
  - Jaundice [Unknown]
  - Platelet count abnormal [Unknown]
  - Aspartate aminotransferase increased [Unknown]
  - Red cell distribution width increased [Unknown]
  - Blood chloride increased [Unknown]
  - Blood urea abnormal [Unknown]
  - Blood potassium abnormal [Unknown]
  - Red blood cell count decreased [Unknown]
  - Bacterial test positive [Unknown]
  - Serum ferritin increased [Unknown]
  - Ocular icterus [Unknown]
  - Monocyte count increased [Unknown]
  - Foetal haemoglobin increased [Unknown]
  - Blood bilirubin increased [Unknown]
  - Acute chest syndrome [Unknown]
  - Chest pain [Unknown]
  - Haematocrit decreased [Unknown]
  - Blood calcium decreased [Unknown]
  - Atrial fibrillation [Unknown]
  - Illness [Unknown]
  - Back pain [Unknown]
  - Blood urine present [Unknown]
  - Urobilinogen urine increased [Unknown]
  - Pain [Recovered/Resolved]
  - Hypoxia [Unknown]
  - Oral candidiasis [Unknown]
  - Carbon dioxide abnormal [Unknown]
  - Alanine aminotransferase increased [Unknown]
  - Reticulocyte count increased [Unknown]
  - Blood glucose increased [Unknown]
  - Pyrexia [Unknown]

NARRATIVE: CASE EVENT DATE: 202004
